FAERS Safety Report 5526360-6 (Version None)
Quarter: 2007Q4

REPORT INFORMATION
  Report Type: 
  Country: None (occurrence: None)
  Receive Date: 20071121
  Receipt Date: 20071121
  Transmission Date: 20080405
  Serious: Yes (Hospitalization)
  Sender: FDA-Public Use
  Company Number: None

PATIENT
  Age: 59 Year
  Sex: Male

DRUGS (1)
  1. GEMCITABINE [Suspect]
     Indication: NEOPLASM MALIGNANT
     Dosage: 2000MG ONCE IV
     Route: 042
     Dates: start: 20071030, end: 20071030

REACTIONS (1)
  - ANAEMIA [None]
